FAERS Safety Report 9501914 (Version 1)
Quarter: 2013Q3

REPORT INFORMATION
  Report Type: Spontaneous
  Country: US (occurrence: US)
  Receive Date: 20130905
  Receipt Date: 20130905
  Transmission Date: 20140515
  Serious: No
  Sender: FDA-Public Use
  Company Number: US-ASTRAZENECA-2013SE49564

PATIENT
  Age: 13 Year
  Sex: Female

DRUGS (3)
  1. SYMBICORT [Suspect]
     Indication: ASTHMA
     Dosage: 160 MCG , UNKNOWN
     Route: 055
     Dates: end: 20130626
  2. FLONASE [Concomitant]
     Indication: ASTHMA
  3. ZYRTEC [Concomitant]
     Indication: ASTHMA

REACTIONS (5)
  - Hallucination, visual [Recovered/Resolved]
  - Scratch [Unknown]
  - Nightmare [Recovered/Resolved]
  - Depressed mood [Recovered/Resolved]
  - Contusion [Unknown]
